FAERS Safety Report 5603151-9 (Version None)
Quarter: 2008Q1

REPORT INFORMATION
  Report Type: 
  Country: None (occurrence: None)
  Receive Date: 20080123
  Receipt Date: 20080110
  Transmission Date: 20080703
  Serious: Yes (Other)
  Sender: FDA-Public Use
  Company Number: 2008000196

PATIENT
  Age: 32 Year
  Sex: Female

DRUGS (1)
  1. LUBRIDERM INTENSE SKIN REPAIR BODY CREAM (NO ACTIVE INGREDIENT) [Suspect]
     Indication: DRY SKIN
     Dosage: VERY LITTLE FOR ONE DAY, TOPICAL
     Route: 061
     Dates: start: 20071225, end: 20071225

REACTIONS (4)
  - EYE DISORDER [None]
  - EYE SWELLING [None]
  - PAIN [None]
  - SWELLING FACE [None]
